FAERS Safety Report 9735943 (Version 3)
Quarter: 2013Q4

REPORT INFORMATION
  Report Type: Spontaneous
  Country: SG (occurrence: SG)
  Receive Date: 20131206
  Receipt Date: 20131226
  Transmission Date: 20140711
  Serious: Yes (Death)
  Sender: FDA-Public Use
  Company Number: SG-BIOMARINAP-SG-2013-102038

PATIENT
  Age: 11 Year
  Sex: Female
  Weight: 17.4 kg

DRUGS (1)
  1. ALDURAZYME [Suspect]
     Indication: MUCOPOLYSACCHARIDOSIS I
     Dosage: 7.8 MG, UNK
     Route: 042
     Dates: end: 20131108

REACTIONS (1)
  - Respiratory tract infection [Fatal]
